FAERS Safety Report 9442065 (Version 1)
Quarter: 2013Q3

REPORT INFORMATION
  Report Type: Spontaneous
  Country: US (occurrence: US)
  Receive Date: 20130806
  Receipt Date: 20130806
  Transmission Date: 20140515
  Serious: No
  Sender: FDA-Public Use
  Company Number: US-PFIZER INC-2013228033

PATIENT
  Sex: 0

DRUGS (2)
  1. EFFEXOR XR [Suspect]
     Dosage: 150 MG, UNK
  2. EFFEXOR [Suspect]
     Dosage: UNK

REACTIONS (5)
  - Heat exhaustion [Unknown]
  - Lethargy [Unknown]
  - Nausea [Unknown]
  - Fatigue [Unknown]
  - Dizziness [Unknown]
